FAERS Safety Report 26179666 (Version 1)
Quarter: 2025Q4

REPORT INFORMATION
  Report Type: Spontaneous
  Country: EU (occurrence: EU)
  Receive Date: 20251219
  Receipt Date: 20251219
  Transmission Date: 20260117
  Serious: Yes (Other)
  Sender: ABBVIE
  Company Number: None

PATIENT
  Age: 24 Year
  Sex: Female
  Weight: 76 kg

DRUGS (2)
  1. RINVOQ [Suspect]
     Active Substance: UPADACITINIB
     Indication: Colitis ulcerative
     Dosage: 1X PER DAY 1 PIECE??UPADACITINIB TABLET MGA 15MG / RINVOQ TABLET MVA 15MG
     Route: 048
     Dates: start: 20241001
  2. ETHINYL ESTRADIOL\LEVONORGESTREL [Concomitant]
     Active Substance: ETHINYL ESTRADIOL\LEVONORGESTREL
     Indication: Product used for unknown indication
     Dosage: TABLET, 30/150 ?G (MICROGRAM)??ETHINYLESTRADIOL/LEVONORGESTREL TABLET 30/150UG / BRAND NAME NOT S...
     Route: 048

REACTIONS (5)
  - Bone giant cell tumour [Not Recovered/Not Resolved]
  - Cervix haemorrhage uterine [Not Recovered/Not Resolved]
  - Weight increased [Not Recovered/Not Resolved]
  - Acne [Not Recovered/Not Resolved]
  - Ectropion of cervix [Not Recovered/Not Resolved]
